FAERS Safety Report 8970588 (Version 1)
Quarter: 2012Q4

REPORT INFORMATION
  Report Type: 
  Country: US (occurrence: US)
  Receive Date: 20121218
  Receipt Date: 20121218
  Transmission Date: 20130627
  Serious: No
  Sender: FDA-Public Use
  Company Number: US-BRISTOL-MYERS SQUIBB COMPANY-17062985

PATIENT
  Age: 84 Year
  Sex: Male

DRUGS (1)
  1. ABILIFY [Suspect]
     Indication: DEPRESSION

REACTIONS (4)
  - Restlessness [Unknown]
  - Hypersomnia [Unknown]
  - Hallucination [Unknown]
  - Confusional state [Unknown]
